FAERS Safety Report 20101583 (Version 1)
Quarter: 2021Q4

REPORT INFORMATION
  Report Type: Spontaneous
  Country: GB (occurrence: GB)
  Receive Date: 20211123
  Receipt Date: 20211123
  Transmission Date: 20220303
  Serious: Yes (Life-Threatening, Hospitalization, Other)
  Sender: FDA-Public Use
  Company Number: GB-MYLANLABS-2021M1082431

PATIENT
  Age: 37 Year
  Sex: Male

DRUGS (8)
  1. CLOZAPINE [Interacting]
     Active Substance: CLOZAPINE
     Indication: Schizophrenia
     Dosage: 900 MILLIGRAM, QD, 200MG AT 08:00 AND 700MG AT 20:00
     Route: 065
     Dates: start: 2009
  2. EPINEPHRINE [Interacting]
     Active Substance: EPINEPHRINE
     Indication: Product used for unknown indication
     Dosage: 500 MICROGRAM, MAXIMUM DOSE 0.19 UG/KG/MIN, BOLUS
  3. EPINEPHRINE [Interacting]
     Active Substance: EPINEPHRINE
     Dosage: 0.19 MICROGRAM/KILOGRAM 1 MINUTE, BOLUS INFUSION
  4. EPINEPHRINE [Interacting]
     Active Substance: EPINEPHRINE
     Dosage: 0.6 MICROGRAM/KILOGRAM 1 MINUTE, INFUSION
  5. AMISULPRIDE [Concomitant]
     Active Substance: AMISULPRIDE
     Indication: Product used for unknown indication
     Dosage: UNK
     Route: 065
  6. LITHIUM                            /00033702/ [Concomitant]
     Indication: Product used for unknown indication
     Dosage: UNK
     Route: 065
  7. POLYETHYLENE GLYCOLS [Concomitant]
     Active Substance: POLYETHYLENE GLYCOLS
     Indication: Product used for unknown indication
     Dosage: UNK
     Route: 065
  8. SENNA                              /00142201/ [Concomitant]
     Indication: Product used for unknown indication
     Dosage: UNK
     Route: 065

REACTIONS (6)
  - Shock [Recovering/Resolving]
  - Hypotension [Recovering/Resolving]
  - Paradoxical drug reaction [Recovering/Resolving]
  - Drug interaction [Recovering/Resolving]
  - Ileus paralytic [Unknown]
  - Intestinal pseudo-obstruction [Unknown]
